FAERS Safety Report 11939472 (Version 2)
Quarter: 2016Q1

REPORT INFORMATION
  Report Type: Spontaneous
  Country: CH (occurrence: CH)
  Receive Date: 20160122
  Receipt Date: 20160224
  Transmission Date: 20160526
  Serious: Yes (Other)
  Sender: FDA-Public Use
  Company Number: CH-TEVA-626636ISR

PATIENT
  Age: 52 Year
  Sex: Female

DRUGS (2)
  1. VITAMIN C [Concomitant]
     Active Substance: ASCORBIC ACID
     Route: 065
  2. PENTOXIFYLLIN [Suspect]
     Active Substance: PENTOXIFYLLINE
     Route: 065

REACTIONS (1)
  - Sneddon^s syndrome [Unknown]
